FAERS Safety Report 8884675 (Version 4)
Quarter: 2013Q2

REPORT INFORMATION
  Report Type: Spontaneous
  Country: US (occurrence: US)
  Receive Date: 20121102
  Receipt Date: 20130422
  Transmission Date: 20140414
  Serious: Yes (Disabling)
  Sender: FDA-Public Use
  Company Number: US-MERCK-1210USA013856

PATIENT
  Sex: Male

DRUGS (2)
  1. PROPECIA [Suspect]
     Indication: ALOPECIA
     Dosage: 1 MG, UNK
     Route: 048
     Dates: start: 1997, end: 1998
  2. WELLBUTRIN [Concomitant]

REACTIONS (20)
  - Aggression [Not Recovered/Not Resolved]
  - Depression [Not Recovered/Not Resolved]
  - Erectile dysfunction [Not Recovered/Not Resolved]
  - Mental disorder [Not Recovered/Not Resolved]
  - Musculoskeletal chest pain [Recovered/Resolved]
  - Nipple pain [Not Recovered/Not Resolved]
  - Testis discomfort [Not Recovered/Not Resolved]
  - Sexual dysfunction [Unknown]
  - Personality change [Unknown]
  - Panic attack [Unknown]
  - Insomnia [Unknown]
  - Ejaculation delayed [Unknown]
  - Loss of libido [Unknown]
  - Mood swings [Unknown]
  - Amnesia [Unknown]
  - Abnormal behaviour [Unknown]
  - Limb injury [Not Recovered/Not Resolved]
  - Bipolar II disorder [Not Recovered/Not Resolved]
  - Post-traumatic stress disorder [Not Recovered/Not Resolved]
  - Back injury [Not Recovered/Not Resolved]
